FAERS Safety Report 4503583-6 (Version None)
Quarter: 2004Q4

REPORT INFORMATION
  Report Type: 
  Country: None (occurrence: None)
  Receive Date: 20041117
  Receipt Date: 20041110
  Transmission Date: 20050328
  Serious: Yes (Hospitalization, Other)
  Sender: FDA-Public Use
  Company Number: PHNU2004DE03871

PATIENT
  Age: 66 Year
  Sex: Male
  Weight: 110 kg

DRUGS (9)
  1. CO-DIOVAN [Suspect]
     Indication: HYPERTENSION
     Dosage: 1 DF, QD
     Route: 048
     Dates: start: 20010323, end: 20040308
  2. MARCUMAR [Concomitant]
     Indication: CORONARY ARTERY DISEASE
     Dates: start: 20030601
  3. CORDAREX [Concomitant]
     Dates: start: 20030903
  4. AMIODARONE [Concomitant]
     Dosage: 1 DF, QD
     Dates: start: 20030915
  5. NEBILET [Concomitant]
     Dosage: 2.5 MG/D
     Dates: start: 20030626
  6. SPIRONOLACTONE [Concomitant]
     Dosage: 25 MG/D
     Dates: start: 20030422
  7. TOREM [Concomitant]
     Dosage: 50 MG/D
     Dates: start: 20040915
  8. ALLOPURINOL [Concomitant]
     Dosage: 1 DF, QD
  9. LOCOL [Concomitant]
     Dates: start: 20040911

REACTIONS (24)
  - ATRIAL FIBRILLATION [None]
  - ATRIAL FLUTTER [None]
  - BLOOD CREATININE INCREASED [None]
  - BLOOD SODIUM DECREASED [None]
  - BLOOD UREA INCREASED [None]
  - BRADYCARDIA [None]
  - BUNDLE BRANCH BLOCK LEFT [None]
  - BUNDLE BRANCH BLOCK RIGHT [None]
  - CARDIAC FAILURE [None]
  - CARDIOVERSION [None]
  - CATHETER PLACEMENT [None]
  - CORONARY ARTERY DISEASE [None]
  - DIABETIC NEPHROPATHY [None]
  - DYSPNOEA EXERTIONAL [None]
  - EJECTION FRACTION DECREASED [None]
  - GLOMERULAR FILTRATION RATE DECREASED [None]
  - HAEMODIALYSIS [None]
  - HYPERKALAEMIA [None]
  - HYPOTHYROIDISM [None]
  - NEPHRITIS INTERSTITIAL [None]
  - POST PROCEDURAL HAEMORRHAGE [None]
  - RENAL FAILURE ACUTE [None]
  - SUPRAVENTRICULAR TACHYCARDIA [None]
  - VARICOSE VEIN [None]
